FAERS Safety Report 20875245 (Version 1)
Quarter: 2022Q2

REPORT INFORMATION
  Report Type: Spontaneous
  Country: FR (occurrence: FR)
  Receive Date: 20220526
  Receipt Date: 20220526
  Transmission Date: 20220720
  Serious: Yes (Other)
  Sender: FDA-Public Use
  Company Number: FR-AFSSAPS-AVNY20220143

PATIENT
  Age: 39 Year
  Sex: Female

DRUGS (1)
  1. ALPRAZOLAM [Suspect]
     Active Substance: ALPRAZOLAM
     Indication: Product used for unknown indication
     Dosage: 0.5 MILLIGRAM (10 TABLETS PER DAY)
     Route: 048
     Dates: start: 202101

REACTIONS (1)
  - Overdose [Unknown]

NARRATIVE: CASE EVENT DATE: 20210101
